FAERS Safety Report 6172687-7 (Version None)
Quarter: 2009Q2

REPORT INFORMATION
  Report Type: 
  Country: None (occurrence: None)
  Receive Date: 20090430
  Receipt Date: 20090428
  Transmission Date: 20091009
  Serious: Yes (Life-Threatening, Hospitalization)
  Sender: FDA-Public Use
  Company Number: FR-JNJFOC-20090302027

PATIENT
  Age: 48 Year
  Sex: Male

DRUGS (3)
  1. RISPERDAL [Suspect]
     Indication: SCHIZOPHRENIA
     Route: 048
  2. TERCIAN [Suspect]
     Indication: SCHIZOPHRENIA
     Route: 048
  3. ANDROTARDYL [Suspect]
     Indication: KLINEFELTER'S SYNDROME
     Route: 030

REACTIONS (2)
  - HOSPITALISATION [None]
  - PULMONARY EMBOLISM [None]
